FAERS Safety Report 16651671 (Version 1)
Quarter: 2019Q3

REPORT INFORMATION
  Report Type: Spontaneous
  Country: ES (occurrence: ES)
  Receive Date: 20190731
  Receipt Date: 20190731
  Transmission Date: 20191004
  Serious: Yes (Life-Threatening)
  Sender: FDA-Public Use
  Company Number: ES-BAYER-2019-142616

PATIENT
  Age: 50 Year
  Sex: Female

DRUGS (1)
  1. ULTRAVIST [Suspect]
     Active Substance: IOPROMIDE
     Indication: X-RAY WITH CONTRAST
     Dosage: 120 ML
     Route: 042
     Dates: start: 20190604, end: 20190604

REACTIONS (5)
  - Localised oedema [Recovered/Resolved]
  - Sensation of foreign body [Recovered/Resolved]
  - Dysphonia [Recovered/Resolved]
  - Eyelid oedema [Recovered/Resolved]
  - Respiratory distress [Recovered/Resolved]

NARRATIVE: CASE EVENT DATE: 20190604
